FAERS Safety Report 26115611 (Version 2)
Quarter: 2025Q4

REPORT INFORMATION
  Report Type: Spontaneous
  Country: KR (occurrence: KR)
  Receive Date: 20251203
  Receipt Date: 20251211
  Transmission Date: 20260117
  Serious: No
  Sender: ASTELLAS
  Company Number: KR-ASTELLAS-2025-AER-063726

PATIENT
  Sex: Male

DRUGS (3)
  1. MIRABEGRON [Suspect]
     Active Substance: MIRABEGRON
     Indication: Prostatomegaly
     Route: 065
     Dates: start: 20250210, end: 20250218
  2. VESICARE [Suspect]
     Active Substance: SOLIFENACIN SUCCINATE
     Indication: Prostatomegaly
     Route: 065
     Dates: start: 20250210, end: 20250218
  3. HARNAL [Suspect]
     Active Substance: TAMSULOSIN HYDROCHLORIDE
     Indication: Prostatomegaly
     Route: 065
     Dates: start: 20250210, end: 20250218

REACTIONS (4)
  - Oedema peripheral [Unknown]
  - Face oedema [Unknown]
  - Product use in unapproved indication [Unknown]
  - Product use in unapproved indication [Unknown]

NARRATIVE: CASE EVENT DATE: 20250210
